FAERS Safety Report 5000493-5 (Version None)
Quarter: 2006Q2

REPORT INFORMATION
  Report Type: 
  Country: None (occurrence: None)
  Receive Date: 20060512
  Receipt Date: 20060510
  Transmission Date: 20061013
  Serious: Yes (Death, Other)
  Sender: FDA-Public Use
  Company Number: US-JNJFOC-20060101763

PATIENT
  Age: 17 Year
  Sex: Female

DRUGS (26)
  1. REMICADE [Suspect]
     Dosage: 20 DOSES OVER 29 MONTHS
     Route: 042
  2. REMICADE [Suspect]
     Dosage: 20 DOSES OVER 29 MONTHS
     Route: 042
  3. REMICADE [Suspect]
     Dosage: 20 DOSES OVER 29 MONTHS
     Route: 042
  4. REMICADE [Suspect]
     Dosage: 20 DOSES OVER 29 MONTHS
     Route: 042
  5. REMICADE [Suspect]
     Dosage: 20 DOSES OVER 29 MONTHS
     Route: 042
  6. REMICADE [Suspect]
     Dosage: 20 DOSES OVER 29 MONTHS
     Route: 042
  7. REMICADE [Suspect]
     Dosage: 20 DOSES OVER 29 MONTHS
     Route: 042
  8. REMICADE [Suspect]
     Dosage: 20 DOSES OVER 29 MONTHS
     Route: 042
  9. REMICADE [Suspect]
     Dosage: 20 DOSES OVER 29 MONTHS
     Route: 042
  10. REMICADE [Suspect]
     Dosage: 20 DOSES OVER 29 MONTHS
     Route: 042
  11. REMICADE [Suspect]
     Dosage: 20 DOSES OVER 29 MONTHS
     Route: 042
  12. REMICADE [Suspect]
     Dosage: 20 DOSES OVER 29 MONTHS
     Route: 042
  13. REMICADE [Suspect]
     Dosage: 20 DOSES OVER 29 MONTHS
     Route: 042
  14. REMICADE [Suspect]
     Dosage: 20 DOSES OVER 29 MONTHS
     Route: 042
  15. REMICADE [Suspect]
     Dosage: 20 DOSES OVER 29 MONTHS
     Route: 042
  16. REMICADE [Suspect]
     Dosage: 20 DOSES OVER 29 MONTHS
     Route: 042
  17. REMICADE [Suspect]
     Dosage: 20 DOSES OVER 29 MONTHS
     Route: 042
  18. REMICADE [Suspect]
     Dosage: 20 DOSES OVER 29 MONTHS
     Route: 042
  19. REMICADE [Suspect]
     Dosage: 20 DOSES OVER 29 MONTHS
     Route: 042
  20. REMICADE [Suspect]
     Indication: CROHN'S DISEASE
     Dosage: 20 DOSES OVER 29 MONTHS
     Route: 042
  21. MESALAZINE [Suspect]
  22. MESALAZINE [Suspect]
     Indication: CROHN'S DISEASE
  23. MERCAPTOPURINE [Suspect]
     Indication: CROHN'S DISEASE
     Dosage: 50-75 MG DAILY
  24. HYDROCORTISONE [Concomitant]
  25. METRONIDAZOLE [Concomitant]
  26. PREDNISONE TAB [Concomitant]

REACTIONS (6)
  - AUTOIMMUNE HEPATITIS [None]
  - DEATH [None]
  - HEPATOSPLENOMEGALY [None]
  - PANCYTOPENIA [None]
  - SEPSIS [None]
  - T-CELL LYMPHOMA [None]
